FAERS Safety Report 21423582 (Version 1)
Quarter: 2022Q4

REPORT INFORMATION
  Report Type: Other
  Country: None (occurrence: IN)
  Receive Date: 20221007
  Receipt Date: 20221007
  Transmission Date: 20230113
  Serious: Yes (Hospitalization, Other)
  Sender: FDA-Public Use
  Company Number: IN-B.Braun Medical Inc.-2133580

PATIENT
  Age: 6 Month
  Sex: Female
  Weight: 7 kg

DRUGS (1)
  1. LIDOCAINE HYDROCHLORIDE [Suspect]
     Active Substance: LIDOCAINE HYDROCHLORIDE

REACTIONS (2)
  - Status epilepticus [Recovering/Resolving]
  - Systemic toxicity [Recovering/Resolving]
